FAERS Safety Report 18366954 (Version 1)
Quarter: 2020Q4

REPORT INFORMATION
  Report Type: Spontaneous
  Country: CA (occurrence: CA)
  Receive Date: 20201009
  Receipt Date: 20201009
  Transmission Date: 20210114
  Serious: Yes (Other)
  Sender: FDA-Public Use
  Company Number: CA-JNJFOC-20201002790

PATIENT
  Age: 45 Year
  Sex: Male

DRUGS (12)
  1. SOLU-MEDROL [Concomitant]
     Active Substance: METHYLPREDNISOLONE SODIUM SUCCINATE
     Indication: ANAL ABSCESS
  2. LECITHIN [Concomitant]
     Active Substance: LECITHIN
  3. VITAMIN C [Concomitant]
     Active Substance: ASCORBIC ACID
  4. ERGOCALCIFEROL. [Concomitant]
     Active Substance: ERGOCALCIFEROL
  5. ZINC. [Concomitant]
     Active Substance: ZINC
  6. VITAMIN B12 [Concomitant]
     Active Substance: CYANOCOBALAMIN
  7. FOLIC ACID. [Concomitant]
     Active Substance: FOLIC ACID
  8. IMURAN [Concomitant]
     Active Substance: AZATHIOPRINE
  9. URSOFALK [Concomitant]
     Active Substance: URSODIOL
  10. INFLIXIMAB, RECOMBINANT [Suspect]
     Active Substance: INFLIXIMAB
     Indication: CROHN^S DISEASE
     Route: 042
  11. ASACOL [Concomitant]
     Active Substance: MESALAMINE
  12. SELENIUM [Concomitant]
     Active Substance: SELENIUM

REACTIONS (7)
  - Nasopharyngitis [Unknown]
  - Intentional product use issue [Unknown]
  - Blood pressure increased [Unknown]
  - Neurogenic shock [Unknown]
  - Rhinorrhoea [Unknown]
  - Blood pressure fluctuation [Unknown]
  - Off label use [Unknown]
